FAERS Safety Report 23654205 (Version 2)
Quarter: 2024Q2

REPORT INFORMATION
  Report Type: Report from Study
  Country: BR (occurrence: BR)
  Receive Date: 20240320
  Receipt Date: 20240430
  Transmission Date: 20240716
  Serious: Yes (Other)
  Sender: FDA-Public Use
  Company Number: BR-JNJFOC-20240341644

PATIENT
  Age: 41 Year
  Sex: Female
  Weight: 78 kg

DRUGS (2)
  1. SIMPONI [Suspect]
     Active Substance: GOLIMUMAB
     Indication: Rheumatoid arthritis
     Route: 058
     Dates: start: 20230102, end: 20230130
  2. SIMPONI [Suspect]
     Active Substance: GOLIMUMAB
     Dosage: CURRENTLY TAKING GOLIMUMAB 50MG
     Route: 058

REACTIONS (12)
  - Colitis [Unknown]
  - Liver function test abnormal [Unknown]
  - C-reactive protein increased [Unknown]
  - Anaemia [Not Recovered/Not Resolved]
  - Sinusitis bacterial [Recovering/Resolving]
  - Sinusitis [Unknown]
  - Platelet count decreased [Unknown]
  - Adenoidal disorder [Unknown]
  - Pain [Unknown]
  - Nausea [Unknown]
  - Dizziness [Unknown]
  - Vomiting [Unknown]

NARRATIVE: CASE EVENT DATE: 20230101
